FAERS Safety Report 9670301 (Version 3)
Quarter: 2013Q4

REPORT INFORMATION
  Report Type: Report from Study
  Country: ZM (occurrence: ZM)
  Receive Date: 20131105
  Receipt Date: 20131205
  Transmission Date: 20140711
  Serious: Yes (Life-Threatening)
  Sender: FDA-Public Use
  Company Number: ZM-GILEAD-2013-0086662

PATIENT
  Age: 5 Month
  Sex: Female
  Weight: 6.9 kg

DRUGS (5)
  1. EMTRICITABINE/TENOFOVIR DISOPROXIL FUMARATE [Suspect]
     Indication: PRODUCT USED FOR UNKNOWN INDICATION
     Dosage: UNK
     Route: 048
  2. EMTRICITABINE/TENOFOVIR DISOPROXIL FUMARATE [Suspect]
     Dosage: UNK
     Route: 064
     Dates: start: 20130321, end: 20130425
  3. NEVIRAPINE [Suspect]
     Indication: HIV INFECTION
     Dosage: UNK
     Route: 048
  4. NEVIRAPINE [Suspect]
     Dosage: 15 MG, ONCE
     Route: 048
     Dates: start: 20130425, end: 20130612
  5. NEVIRAPINE [Suspect]
     Dosage: 200 MG, BID
     Route: 064
     Dates: start: 20130321, end: 20130425

REACTIONS (1)
  - Anaemia [Not Recovered/Not Resolved]
